FAERS Safety Report 7452262-4 (Version None)
Quarter: 2011Q2

REPORT INFORMATION
  Report Type: 
  Country: None (occurrence: None)
  Receive Date: 20110425
  Receipt Date: 20110415
  Transmission Date: 20111010
  Serious: Yes (Death, Hospitalization)
  Sender: FDA-Public Use
  Company Number: 2010SP036511

PATIENT
  Age: 85 Year
  Sex: Female

DRUGS (3)
  1. MIRTAZAPINE [Suspect]
     Indication: PRODUCT USED FOR UNKNOWN INDICATION
     Dosage: 15 MG;QD;PO
     Route: 048
     Dates: start: 20100611, end: 20100621
  2. NEXIUM [Suspect]
     Indication: PROPHYLAXIS AGAINST GASTROINTESTINAL ULCER
     Dosage: 40 MG;QD;IV
     Route: 042
     Dates: start: 20100607, end: 20100611
  3. LOVENOX [Suspect]
     Indication: PROPHYLAXIS
     Dates: start: 20100607

REACTIONS (6)
  - THROMBOCYTOPENIA [None]
  - ANAEMIA [None]
  - RESPIRATORY DISTRESS [None]
  - SHOCK [None]
  - LYMPHOPENIA [None]
  - CONDITION AGGRAVATED [None]
